FAERS Safety Report 9995458 (Version 3)
Quarter: 2014Q1

REPORT INFORMATION
  Report Type: Spontaneous
  Country: US (occurrence: None)
  Receive Date: 20140306
  Receipt Date: 20140327
  Transmission Date: 20141002
  Serious: Yes (Hospitalization)
  Sender: FDA-Public Use
  Company Number: JPI-P-021165

PATIENT
  Age: 31 Year
  Sex: Female
  Weight: 65.3 kg

DRUGS (4)
  1. XYREM [Suspect]
     Indication: NARCOLEPSY
     Route: 048
     Dates: start: 200903, end: 20100801
  2. XYREM [Suspect]
     Indication: CATAPLEXY
     Route: 048
     Dates: start: 200903, end: 20100801
  3. ADDERALL [Suspect]
     Indication: NARCOLEPSY
     Route: 048
     Dates: start: 2011
  4. NUVIGIL (ARMODAFINIL) [Concomitant]

REACTIONS (21)
  - Arthralgia [None]
  - Condition aggravated [None]
  - Grip strength decreased [None]
  - Dehydration [None]
  - Tongue disorder [None]
  - Tongue discolouration [None]
  - Joint swelling [None]
  - Rheumatoid factor increased [None]
  - Thirst [None]
  - Weight decreased [None]
  - Joint stiffness [None]
  - Agitation [None]
  - Tremor [None]
  - Arthropathy [None]
  - Caesarean section [None]
  - Tongue coated [None]
  - Feeling abnormal [None]
  - Pregnancy [None]
  - Maternal exposure during pregnancy [None]
  - Back pain [None]
  - Somnolence [None]
